FAERS Safety Report 18398588 (Version 1)
Quarter: 2020Q4

REPORT INFORMATION
  Report Type: Spontaneous
  Country: US (occurrence: US)
  Receive Date: 20201019
  Receipt Date: 20201019
  Transmission Date: 20210114
  Serious: Yes (Death)
  Sender: FDA-Public Use
  Company Number: None

PATIENT
  Age: 85 Year
  Sex: Male
  Weight: 80.9 kg

DRUGS (19)
  1. INSULIN GLARGINE [Concomitant]
     Active Substance: INSULIN GLARGINE
     Dates: start: 20200822, end: 20200824
  2. INSULIN LISPRO [Concomitant]
     Active Substance: INSULIN LISPRO
     Dates: start: 20200819, end: 20200824
  3. MELATONIN [Concomitant]
     Active Substance: MELATONIN
     Dates: start: 20200819, end: 20200824
  4. SODIUM POLYSTYRENE SULFONATE. [Concomitant]
     Active Substance: SODIUM POLYSTYRENE SULFONATE
     Dates: start: 20200824, end: 20200824
  5. ENOXAPARIN [Concomitant]
     Active Substance: ENOXAPARIN
     Dates: start: 20200819, end: 20200824
  6. ALBUMIN [Concomitant]
     Active Substance: ALBUMIN HUMAN
     Dates: start: 20200823, end: 20200824
  7. DEXAMETHASONE. [Concomitant]
     Active Substance: DEXAMETHASONE
     Dates: start: 20200819, end: 20200824
  8. LACTOBACILLUS ACIDOPH/BULGAR [Concomitant]
     Dates: start: 20200819, end: 20200825
  9. AMIODARONE [Concomitant]
     Active Substance: AMIODARONE
     Dates: start: 20200824, end: 20200824
  10. CEFTRIAXONE. [Concomitant]
     Active Substance: CEFTRIAXONE
     Dates: start: 20200819, end: 20200823
  11. CHLORHEXIDINE GLUCONATE. [Concomitant]
     Active Substance: CHLORHEXIDINE GLUCONATE
     Dates: start: 20200819, end: 20200825
  12. FAMOTIDINE. [Concomitant]
     Active Substance: FAMOTIDINE
     Dates: start: 20200819, end: 20200824
  13. LORAZEPAM. [Concomitant]
     Active Substance: LORAZEPAM
     Dates: start: 20200820, end: 20200823
  14. PROPOFOL. [Concomitant]
     Active Substance: PROPOFOL
     Dates: start: 20200819, end: 20200824
  15. TAMSULOSIN [Concomitant]
     Active Substance: TAMSULOSIN
     Dates: start: 20200820, end: 20200824
  16. VECURONIUM [Concomitant]
     Active Substance: VECURONIUM BROMIDE
     Dates: start: 20200823, end: 20200823
  17. REMDESIVIR. [Suspect]
     Active Substance: REMDESIVIR
     Indication: COVID-19
     Route: 042
     Dates: start: 20200821, end: 20200824
  18. DOXYCYCLINE HYCLATE. [Concomitant]
     Active Substance: DOXYCYCLINE HYCLATE
     Dates: start: 20200819, end: 20200824
  19. FENTANYL CITRATE. [Concomitant]
     Active Substance: FENTANYL CITRATE
     Dates: start: 20200821, end: 20200824

REACTIONS (6)
  - Hypertension [None]
  - Cardio-respiratory arrest [None]
  - Acute respiratory failure [None]
  - Coronary artery disease [None]
  - Ejection fraction decreased [None]
  - Cardiac failure [None]

NARRATIVE: CASE EVENT DATE: 20200825
